FAERS Safety Report 6480419-8 (Version None)
Quarter: 2009Q4

REPORT INFORMATION
  Report Type: 
  Country: None (occurrence: None)
  Receive Date: 20091208
  Receipt Date: 20091123
  Transmission Date: 20100525
  Serious: Yes (Hospitalization)
  Sender: FDA-Public Use
  Company Number: US-SANOFI-AVENTIS-200918977US

PATIENT
  Sex: Male

DRUGS (3)
  1. INSULIN GLARGINE [Suspect]
     Dosage: DOSE:30 UNIT(S)
     Route: 058
  2. NOVOLIN 70/30 [Suspect]
     Dosage: DOSE AS USED: UNK
  3. DIURETICS [Concomitant]
     Dosage: DOSE AS USED: UNK

REACTIONS (2)
  - BLOOD GLUCOSE INCREASED [None]
  - CARDIAC FAILURE CONGESTIVE [None]
